FAERS Safety Report 17369441 (Version 2)
Quarter: 2020Q1

REPORT INFORMATION
  Report Type: Spontaneous
  Country: US (occurrence: US)
  Receive Date: 20200131
  Receipt Date: 20200207
  Transmission Date: 20200409
  Serious: Yes (Hospitalization, Other)
  Sender: FDA-Public Use
  Company Number: US-009507513-2001USA008563

PATIENT
  Age: 84 Year
  Sex: Female

DRUGS (2)
  1. REMERON [Suspect]
     Active Substance: MIRTAZAPINE
     Dosage: AT NIGHT
     Route: 048
  2. CYMBALTA [Suspect]
     Active Substance: DULOXETINE HYDROCHLORIDE
     Dosage: AT NIGHT

REACTIONS (5)
  - Fall [Unknown]
  - Depression [Unknown]
  - Gait disturbance [Unknown]
  - Movement disorder [Unknown]
  - Carotid artery aneurysm [Unknown]

NARRATIVE: CASE EVENT DATE: 202001
